FAERS Safety Report 22966149 (Version 2)
Quarter: 2023Q4

REPORT INFORMATION
  Report Type: Spontaneous
  Country: TR (occurrence: TR)
  Receive Date: 20230921
  Receipt Date: 20231010
  Transmission Date: 20240109
  Serious: Yes (Other)
  Sender: FDA-Public Use
  Company Number: TR-UCBSA-2023045768

PATIENT
  Sex: Female

DRUGS (3)
  1. LEVETIRACETAM [Suspect]
     Active Substance: LEVETIRACETAM
     Indication: Generalised tonic-clonic seizure
     Dosage: UNK
  2. IMIPRAMINE [Concomitant]
     Active Substance: IMIPRAMINE
     Indication: Cataplexy
     Dosage: UNK
  3. MIGLUSTAT [Concomitant]
     Active Substance: MIGLUSTAT
     Indication: Niemann-Pick disease
     Dosage: UNK

REACTIONS (2)
  - Cataplexy [Recovered/Resolved]
  - Off label use [Unknown]
